FAERS Safety Report 6378762-6 (Version None)
Quarter: 2009Q3

REPORT INFORMATION
  Report Type: 
  Country: None (occurrence: None)
  Receive Date: 20090928
  Receipt Date: 20090917
  Transmission Date: 20100115
  Serious: Yes (Hospitalization)
  Sender: FDA-Public Use
  Company Number: DE-JNJFOC-20090709345

PATIENT
  Age: 58 Year
  Sex: Female

DRUGS (14)
  1. REMICADE [Suspect]
     Route: 042
  2. REMICADE [Suspect]
     Indication: RHEUMATOID ARTHRITIS
     Route: 042
  3. ETANERCEPT [Suspect]
  4. ETANERCEPT [Suspect]
  5. ETANERCEPT [Suspect]
  6. ETANERCEPT [Suspect]
  7. ETANERCEPT [Suspect]
     Indication: RHEUMATOID ARTHRITIS
  8. CELLCEPT [Concomitant]
  9. OMEP [Concomitant]
  10. CALCIMAGON D3 [Concomitant]
  11. FOSAMAX [Concomitant]
     Dosage: FOSAMAX 70
  12. PREDNISOLONE [Concomitant]
  13. TOCILIZUMAB [Concomitant]
     Dosage: 2 INFUSIONS
     Route: 042
  14. VOLTAREN RETARD [Concomitant]

REACTIONS (1)
  - NON-HODGKIN'S LYMPHOMA [None]
